FAERS Safety Report 8837130 (Version 2)
Quarter: 2013Q2

REPORT INFORMATION
  Report Type: Spontaneous
  Country: BR (occurrence: BR)
  Receive Date: 20121012
  Receipt Date: 20130404
  Transmission Date: 20140414
  Serious: Yes (Life-Threatening, Other)
  Sender: FDA-Public Use
  Company Number: PHHY2012BR090268

PATIENT
  Age: 41 Year
  Sex: Male

DRUGS (2)
  1. LEPONEX [Suspect]
     Indication: SCHIZOPHRENIA
     Dosage: HALF TABLET 2 TIMES A DAY
     Route: 048
  2. LEPONEX [Suspect]
     Dosage: 150 MG (25MG AT A DOSE OF 2 TABLETS AND LEPONEX 100MG (CLOZAPINE)), AT A DOSE OF 1 TABLET)
     Route: 048
     Dates: start: 20121003

REACTIONS (6)
  - Feeling abnormal [Unknown]
  - Neutropenia [Unknown]
  - Leukopenia [Unknown]
  - Oropharyngeal pain [Recovered/Resolved]
  - Tonsillitis [Recovered/Resolved]
  - Pyrexia [Recovered/Resolved]
